FAERS Safety Report 25792314 (Version 1)
Quarter: 2025Q3

REPORT INFORMATION
  Report Type: Spontaneous
  Country: CA (occurrence: CA)
  Receive Date: 20250911
  Receipt Date: 20250911
  Transmission Date: 20251020
  Serious: Yes (Life-Threatening, Hospitalization, Other)
  Sender: PFIZER
  Company Number: CA-PFIZER INC-202500179494

PATIENT
  Age: 8 Year
  Sex: Female
  Weight: 25 kg

DRUGS (3)
  1. METHOTREXATE SODIUM [Suspect]
     Active Substance: METHOTREXATE SODIUM
  2. CYTARABINE [Suspect]
     Active Substance: CYTARABINE
  3. TOLODODEKIN ALFA [Suspect]
     Active Substance: TOLODODEKIN ALFA

REACTIONS (1)
  - Febrile neutropenia [Recovered/Resolved]
